FAERS Safety Report 4750825-8 (Version None)
Quarter: 2005Q3

REPORT INFORMATION
  Report Type: 
  Country: None (occurrence: None)
  Receive Date: 20050822
  Receipt Date: 20050810
  Transmission Date: 20060218
  Serious: Yes (Hospitalization)
  Sender: FDA-Public Use
  Company Number: 2005-BP-12556RO

PATIENT
  Age: 45 Year
  Sex: Female

DRUGS (6)
  1. PREDNISONE TAB [Suspect]
     Indication: PROPHYLAXIS AGAINST TRANSPLANT REJECTION
     Dosage: 17.5 MG/DAY (1 IN 1 D) PO
     Route: 048
  2. BELATACEPT [Suspect]
     Indication: PROPHYLAXIS AGAINST TRANSPLANT REJECTION
     Dosage: IV
     Route: 042
  3. CELLCEPT [Suspect]
     Indication: PROPHYLAXIS AGAINST TRANSPLANT REJECTION
     Dosage: 2 GM/DAY (NR, 1 IN 1 D) PO
     Route: 048
  4. BACTRIM [Concomitant]
  5. NYSTATIN [Concomitant]
  6. DILTIAZEM [Concomitant]

REACTIONS (1)
  - DEHYDRATION [None]
